FAERS Safety Report 5712108-9 (Version None)
Quarter: 2008Q2

REPORT INFORMATION
  Report Type: 
  Country: None (occurrence: None)
  Receive Date: 20080418
  Receipt Date: 20080331
  Transmission Date: 20081010
  Serious: Yes (Hospitalization)
  Sender: FDA-Public Use
  Company Number: TRP_01097_2008

PATIENT
  Sex: Male

DRUGS (4)
  1. RIBASPHERE [Suspect]
     Indication: HEPATITIS C
     Dosage: (1000 MG ORAL)
     Route: 048
     Dates: start: 20071230
  2. RIBASPHERE [Suspect]
     Indication: HEPATITIS C
     Dosage: (400 MG ORAL)
     Route: 048
     Dates: start: 20080101
  3. RIBASPHERE [Suspect]
     Indication: HEPATITIS C
     Dosage: (800 MG ORAL)
     Route: 048
     Dates: start: 20080219
  4. PEGASYS [Suspect]
     Dosage: (180 UG 1X/WEEK SUBCUTANEOUS)
     Route: 058
     Dates: start: 20071230

REACTIONS (9)
  - ANAEMIA [None]
  - DIZZINESS [None]
  - EPISTAXIS [None]
  - FATIGUE [None]
  - INCREASED UPPER AIRWAY SECRETION [None]
  - LOSS OF CONSCIOUSNESS [None]
  - NAUSEA [None]
  - PHARYNGOLARYNGEAL PAIN [None]
  - WEIGHT DECREASED [None]
